FAERS Safety Report 12297248 (Version 1)
Quarter: 2016Q2

REPORT INFORMATION
  Report Type: Spontaneous
  Country: GB (occurrence: GB)
  Receive Date: 20160422
  Receipt Date: 20160422
  Transmission Date: 20160815
  Serious: Yes (Hospitalization, Other)
  Sender: FDA-Public Use
  Company Number: GB-MYLANLABS-2016M1016821

PATIENT

DRUGS (5)
  1. TIOTROPIUM BROMIDE [Concomitant]
     Active Substance: TIOTROPIUM BROMIDE
     Indication: PRODUCT USED FOR UNKNOWN INDICATION
     Route: 065
  2. SERETIDE [Concomitant]
     Active Substance: FLUTICASONE PROPIONATE\SALMETEROL XINAFOATE
     Indication: PRODUCT USED FOR UNKNOWN INDICATION
     Route: 065
  3. THEOPHYLLINE [Suspect]
     Active Substance: THEOPHYLLINE ANHYDROUS
     Indication: PRODUCT USED FOR UNKNOWN INDICATION
     Route: 048
     Dates: start: 201304
  4. PREDNISOLONE. [Concomitant]
     Active Substance: PREDNISOLONE
     Indication: PRODUCT USED FOR UNKNOWN INDICATION
     Route: 065
  5. SALBUTAMOL [Concomitant]
     Active Substance: ALBUTEROL
     Indication: PRODUCT USED FOR UNKNOWN INDICATION
     Route: 065

REACTIONS (15)
  - Tachyarrhythmia [Unknown]
  - Gastrointestinal hypomotility [Recovered/Resolved]
  - Toxicity to various agents [Unknown]
  - Cardiac failure congestive [Unknown]
  - Hypomagnesaemia [Recovered/Resolved]
  - Nausea [Unknown]
  - Vision blurred [Unknown]
  - Hypokalaemia [Recovered/Resolved]
  - Depressed level of consciousness [Unknown]
  - Renal impairment [Unknown]
  - Vomiting [Unknown]
  - Seizure [Unknown]
  - Fatigue [Unknown]
  - Dysarthria [Unknown]
  - Hypocalcaemia [Recovered/Resolved]
